FAERS Safety Report 7786829-0 (Version None)
Quarter: 2011Q3

REPORT INFORMATION
  Report Type: 
  Country: None (occurrence: None)
  Receive Date: 20110928
  Receipt Date: 20110928
  Transmission Date: 20111222
  Serious: Yes (Hospitalization)
  Sender: FDA-Public Use
  Company Number: None

PATIENT
  Sex: Female
  Weight: 45.1 kg

DRUGS (2)
  1. PEMETREXED [Suspect]
     Dosage: 660 MG
  2. CISPLATIN [Suspect]
     Dosage: 66 MG

REACTIONS (12)
  - BLOOD PRESSURE DIASTOLIC DECREASED [None]
  - BLOOD LACTATE DEHYDROGENASE INCREASED [None]
  - GASTROINTESTINAL HAEMORRHAGE [None]
  - GASTRIC ULCER [None]
  - ANAEMIA [None]
  - DYSPNOEA [None]
  - PROCTOCOLITIS [None]
  - FATIGUE [None]
  - BODY TEMPERATURE DECREASED [None]
  - PALPITATIONS [None]
  - JUGULAR VEIN DISTENSION [None]
  - GASTRIC CANCER [None]
